FAERS Safety Report 7290137-4 (Version None)
Quarter: 2011Q1

REPORT INFORMATION
  Report Type: 
  Country: None (occurrence: None)
  Receive Date: 20110214
  Receipt Date: 20110204
  Transmission Date: 20110831
  Serious: Yes (Death)
  Sender: FDA-Public Use
  Company Number: IT-SANOFI-AVENTIS-2011SA007272

PATIENT
  Age: 63 Year
  Sex: Female

DRUGS (4)
  1. LUMINALE [Suspect]
     Route: 048
     Dates: start: 20110108, end: 20110129
  2. CLEXANE [Suspect]
     Indication: THROMBOSIS PROPHYLAXIS
     Route: 058
     Dates: start: 20110121, end: 20110202
  3. PANTORC [Concomitant]
     Indication: GASTRITIS
     Route: 048
     Dates: start: 20110128, end: 20110202
  4. DEXAMETHASONE [Suspect]
     Route: 042
     Dates: start: 20110108, end: 20110202

REACTIONS (2)
  - STEVENS-JOHNSON SYNDROME [None]
  - ERYTHEMA MULTIFORME [None]
